FAERS Safety Report 11887011 (Version 1)
Quarter: 2016Q1

REPORT INFORMATION
  Report Type: Report from Study
  Country: KR (occurrence: KR)
  Receive Date: 20160104
  Receipt Date: 20160104
  Transmission Date: 20160526
  Serious: Yes (Hospitalization)
  Sender: FDA-Public Use
  Company Number: KR-EISAI MEDICAL RESEARCH-EC-2016-013278

PATIENT
  Age: 50 Year
  Sex: Female
  Weight: 52 kg

DRUGS (8)
  1. HALAVEN [Suspect]
     Active Substance: ERIBULIN MESYLATE
     Indication: BREAST CANCER
     Route: 041
     Dates: start: 20140603, end: 20140603
  2. ZANTAC [Concomitant]
     Active Substance: RANITIDINE HYDROCHLORIDE
  3. CENTRUM [Concomitant]
     Active Substance: VITAMINS
  4. DEXAMETHASONE. [Concomitant]
     Active Substance: DEXAMETHASONE
  5. LEGALON [Concomitant]
     Active Substance: MILK THISTLE
  6. PARIET [Concomitant]
     Active Substance: RABEPRAZOLE SODIUM
  7. HALAVEN [Suspect]
     Active Substance: ERIBULIN MESYLATE
     Route: 041
     Dates: start: 20140612, end: 20150309
  8. URUSA [Concomitant]

REACTIONS (1)
  - Neutrophil count decreased [Recovered/Resolved]

NARRATIVE: CASE EVENT DATE: 20140818
